FAERS Safety Report 19706664 (Version 1)
Quarter: 2021Q3

REPORT INFORMATION
  Report Type: Spontaneous
  Country: US (occurrence: US)
  Receive Date: 20210816
  Receipt Date: 20210816
  Transmission Date: 20211014
  Serious: No
  Sender: FDA-Public Use
  Company Number: None

PATIENT
  Age: 62 Year
  Sex: Male

DRUGS (1)
  1. CELECOXIB (CELECOXIB 200MG CAP) [Suspect]
     Active Substance: CELECOXIB
     Indication: PAIN
     Route: 048
     Dates: start: 20210414, end: 20210512

REACTIONS (3)
  - Diarrhoea [None]
  - Abdominal pain [None]
  - Abdominal discomfort [None]

NARRATIVE: CASE EVENT DATE: 20210512
